FAERS Safety Report 22113563 (Version 2)
Quarter: 2023Q1

REPORT INFORMATION
  Report Type: Spontaneous
  Country: US (occurrence: US)
  Receive Date: 20230320
  Receipt Date: 20230323
  Transmission Date: 20230417
  Serious: Yes (Other)
  Sender: FDA-Public Use
  Company Number: US-002147023-NVSC2023US060387

PATIENT

DRUGS (1)
  1. PREDNISOLONE ACETATE [Suspect]
     Active Substance: PREDNISOLONE ACETATE
     Indication: Product used for unknown indication
     Dosage: UNK
     Route: 065

REACTIONS (8)
  - Uveitis [Not Recovered/Not Resolved]
  - Eye swelling [Unknown]
  - Tinnitus [Unknown]
  - Paraesthesia [Unknown]
  - Restlessness [Unknown]
  - Throat tightness [Unknown]
  - Headache [Unknown]
  - Pruritus [Unknown]
